FAERS Safety Report 9612506 (Version 1)
Quarter: 2013Q4

REPORT INFORMATION
  Report Type: Spontaneous
  Country: US (occurrence: None)
  Receive Date: 20131008
  Receipt Date: 20131008
  Transmission Date: 20140711
  Serious: Yes (Other)
  Sender: FDA-Public Use
  Company Number: AUR-APL-2013-08153

PATIENT
  Age: 43 Year
  Sex: Male

DRUGS (1)
  1. DONEPEZIL (DONEPEZIL) [Suspect]
     Indication: FRONTOTEMPORAL DEMENTIA
     Dosage: UNKNOWN

REACTIONS (10)
  - Confusional state [None]
  - Change in sustained attention [None]
  - Apathy [None]
  - Affect lability [None]
  - Apraxia [None]
  - Memory impairment [None]
  - Hypercholesterolaemia [None]
  - Hypertriglyceridaemia [None]
  - Cerebral atrophy [None]
  - Gliosis [None]
